FAERS Safety Report 21950438 (Version 1)
Quarter: 2023Q1

REPORT INFORMATION
  Report Type: Spontaneous
  Country: US (occurrence: None)
  Receive Date: 20230201
  Receipt Date: 20230201
  Transmission Date: 20230418
  Serious: No
  Sender: FDA-Public Use
  Company Number: None

PATIENT

DRUGS (2)
  1. GLUCAGEN [Suspect]
     Active Substance: GLUCAGON HYDROCHLORIDE
     Route: 030
  2. GLUCAGON [Suspect]
     Active Substance: GLUCAGON

REACTIONS (3)
  - Device safety feature issue [None]
  - Circumstance or information capable of leading to medication error [None]
  - Device difficult to use [None]
